APPROVED DRUG PRODUCT: LORATADINE
Active Ingredient: LORATADINE
Strength: 10MG
Dosage Form/Route: TABLET;ORAL
Application: A214684 | Product #001
Applicant: UNIQUE PHARMACEUTICAL LABORATORIES
Approved: Jan 7, 2021 | RLD: No | RS: No | Type: OTC